FAERS Safety Report 18403016 (Version 1)
Quarter: 2020Q4

REPORT INFORMATION
  Report Type: Spontaneous
  Country: ES (occurrence: ES)
  Receive Date: 20201020
  Receipt Date: 20201020
  Transmission Date: 20210114
  Serious: Yes (Hospitalization)
  Sender: FDA-Public Use
  Company Number: ES-TEVA-2020-ES-1839060

PATIENT
  Age: 90 Year
  Sex: Female

DRUGS (9)
  1. FENTANILO 12 MICROGRAMOS/H 5 PARCHES TRANSDERMICOS [Concomitant]
     Indication: OSTEOARTHRITIS
     Dosage: UNIT DOSE : 1 DOSAGE FORMS
     Route: 062
     Dates: start: 20170607
  2. OMEPRAZOL RATIO 20 MG CAPSULAS DURAS GASTRORRESISTENTES EFG , 28 CAPSU [Concomitant]
     Indication: GASTRITIS
     Dosage: UNIT DOSE : 20 MG
     Route: 048
     Dates: start: 20080731
  3. FUROSEMIDA 40 MG 30 COMPRIMIDOS [Concomitant]
     Active Substance: FUROSEMIDE
     Indication: CARDIAC FAILURE
     Dosage: UNIT DOSE : 20 MG
     Route: 048
     Dates: start: 20170408
  4. RISPERIDONA 1 MG 60 COMPRIMIDOS [Concomitant]
     Indication: SENILE DEMENTIA
     Dosage: UNIT DOSE : 1 MG
     Route: 048
     Dates: start: 20170407
  5. BISOPROLOL (2328A) [Suspect]
     Active Substance: BISOPROLOL
     Indication: HYPERTENSION
     Dosage: UNIT DOSE : 2.5 MG
     Route: 048
     Dates: start: 20170607, end: 20200129
  6. CETIRIZINA MYLAN 10 MG COMPRIMIDOS RECUBIERTOS CON PELICULA EFG , 20 C [Concomitant]
     Indication: HYPERTENSION
     Dosage: UNIT DOSE : 10 MG
     Route: 048
     Dates: start: 20080731
  7. COPALIA 10 MG/160 MG COMPRIMIDOS RECUBIERTOS CON PELICULA, 28 COMPRIMI [Concomitant]
     Indication: HYPERTENSION
     Dosage: UNIT DOSE : 160 MG
     Route: 048
     Dates: start: 20120313
  8. PARACETAMOL 650 MG 40 COMPRIMIDOS [Concomitant]
     Indication: PRODUCT USED FOR UNKNOWN INDICATION
     Dosage: UNIT DOSE : 650 MG
     Route: 048
     Dates: start: 20170324
  9. OXCARBAZEPINA 300 MG 100 COMPRIMIDOS [Concomitant]
     Indication: PRODUCT USED FOR UNKNOWN INDICATION
     Dosage: UNIT DOSE : 300 MG
     Route: 048
     Dates: start: 20170407

REACTIONS (1)
  - Atrioventricular block complete [Recovered/Resolved]

NARRATIVE: CASE EVENT DATE: 20200129
